FAERS Safety Report 23668839 (Version 1)
Quarter: 2024Q1

REPORT INFORMATION
  Report Type: Spontaneous
  Country: US (occurrence: US)
  Receive Date: 20240325
  Receipt Date: 20240325
  Transmission Date: 20240410
  Serious: Yes (Hospitalization, Other)
  Sender: FDA-Public Use
  Company Number: US-DRL-USA-LIT/USA/24/0004723

PATIENT
  Sex: Female
  Weight: 3.7 kg

DRUGS (1)
  1. SIROLIMUS [Suspect]
     Active Substance: SIROLIMUS
     Indication: Pulmonary vein stenosis
     Dosage: TARGET LEVEL OF 6-10?G/L

REACTIONS (3)
  - Sepsis [Unknown]
  - Disease progression [Unknown]
  - Drug ineffective [Unknown]
